FAERS Safety Report 9517033 (Version 2)
Quarter: 2013Q4

REPORT INFORMATION
  Report Type: Spontaneous
  Country: US (occurrence: US)
  Receive Date: 20130911
  Receipt Date: 20131106
  Transmission Date: 20140711
  Serious: No
  Sender: FDA-Public Use
  Company Number: US-PFIZER INC-2013256689

PATIENT
  Age: 81 Year
  Sex: Female

DRUGS (12)
  1. AROMASIN [Suspect]
     Indication: BREAST CANCER
     Dosage: 25 MG, 1X/DAY
     Route: 048
     Dates: start: 20130225
  2. AFINITOR [Suspect]
     Indication: BREAST CANCER
     Dosage: 10 MG, UNK
     Dates: start: 20130225
  3. FERROUS SULFATE [Concomitant]
     Dosage: UNK
  4. LORTAB [Concomitant]
     Dosage: 5/500 UNK, UNK
  5. NEURONTIN [Concomitant]
     Dosage: 300 MG, 3X/DAY
  6. ASA [Concomitant]
  7. CALCIUM [Concomitant]
     Indication: SUPPLEMENTATION THERAPY
  8. LASIX [Concomitant]
     Dosage: UNK
  9. LEXAPRO [Concomitant]
  10. VITAMIN B12 [Concomitant]
     Dosage: UNK
  11. VITAMIN D [Concomitant]
     Dosage: UNK
  12. VITAMIN E [Concomitant]
     Dosage: UNK

REACTIONS (3)
  - Stomatitis [Unknown]
  - Mucosal inflammation [Recovered/Resolved]
  - Dysphagia [Unknown]
